FAERS Safety Report 8909440 (Version 1)
Quarter: 2012Q4

REPORT INFORMATION
  Report Type: 
  Country: US (occurrence: US)
  Receive Date: 20121114
  Receipt Date: 20121114
  Transmission Date: 20130627
  Serious: Yes (Other)
  Sender: FDA-Public Use
  Company Number: US-MYLANLABS-2012S1023102

PATIENT

DRUGS (1)
  1. TOPIRAMATE TABLETS [Suspect]
     Indication: CONVULSION
     Dates: start: 20070926

REACTIONS (2)
  - Convulsion [Unknown]
  - Drug level below therapeutic [Unknown]
